FAERS Safety Report 14893275 (Version 1)
Quarter: 2018Q2

REPORT INFORMATION
  Report Type: Spontaneous
  Country: US (occurrence: US)
  Receive Date: 20180514
  Receipt Date: 20180514
  Transmission Date: 20180711
  Serious: No
  Sender: FDA-Public Use
  Company Number: US-SUNOVION-2018SUN001907

PATIENT
  Sex: Female

DRUGS (1)
  1. LATUDA [Suspect]
     Active Substance: LURASIDONE HYDROCHLORIDE
     Dosage: 20 MG AT BEDTIME WITH FOOD
     Route: 048
     Dates: start: 20180408, end: 20180430

REACTIONS (3)
  - Gait disturbance [Unknown]
  - Somnolence [Unknown]
  - Dysarthria [Unknown]
